FAERS Safety Report 9456404 (Version 1)
Quarter: 2013Q3

REPORT INFORMATION
  Report Type: Spontaneous
  Country: US (occurrence: US)
  Receive Date: 20130813
  Receipt Date: 20130813
  Transmission Date: 20140515
  Serious: Yes (Other)
  Sender: FDA-Public Use
  Company Number: US-ASTRAZENECA-2013SE61452

PATIENT
  Age: 53 Year
  Sex: Male
  Weight: 117.9 kg

DRUGS (11)
  1. NEXIUM [Suspect]
     Indication: GASTROOESOPHAGEAL REFLUX DISEASE
     Route: 048
  2. NEXIUM [Suspect]
     Indication: GASTROOESOPHAGEAL REFLUX DISEASE
     Route: 048
  3. VALSPTRAN HCT [Concomitant]
     Indication: HYPERTENSION
     Dosage: 8012.5
  4. METFORMIN [Concomitant]
     Indication: DIABETES MELLITUS
     Dosage: 500MG
  5. PROBIOTIC [Concomitant]
  6. FLONASE GENERIC [Concomitant]
     Indication: MULTIPLE ALLERGIES
  7. VITAMIN C [Concomitant]
  8. VITAMIN E [Concomitant]
  9. BIOTIN [Concomitant]
  10. GARLIC [Concomitant]
     Dosage: 1000MG
  11. ZYRTEC [Concomitant]
     Indication: MULTIPLE ALLERGIES

REACTIONS (12)
  - Hepatic failure [Unknown]
  - Oesophageal stenosis [Unknown]
  - Ingrowing nail [Unknown]
  - Pyrexia [Unknown]
  - Gastric disorder [Unknown]
  - Abnormal behaviour [Unknown]
  - Stress [Unknown]
  - Visual acuity reduced [Unknown]
  - Type 2 diabetes mellitus [Unknown]
  - Malaise [Unknown]
  - Abdominal discomfort [Unknown]
  - Drug dose omission [Unknown]
